FAERS Safety Report 5945277-6 (Version None)
Quarter: 2008Q4

REPORT INFORMATION
  Report Type: 
  Country: None (occurrence: None)
  Receive Date: 20081031
  Receipt Date: 20081026
  Transmission Date: 20090506
  Serious: Yes (Hospitalization, Other)
  Sender: FDA-Public Use
  Company Number: 200813543

PATIENT
  Age: 55 Year
  Sex: Female
  Weight: 74 kg

DRUGS (16)
  1. ANTIHEMOPHILIC FACTOR NOS [Suspect]
     Indication: VON WILLEBRAND'S DISEASE
     Dosage: IV
     Route: 042
     Dates: start: 20070301
  2. ANTIHEMOPHILIC FACTOR NOS [Suspect]
  3. ANTIHEMOPHILIC FACTOR NOS [Suspect]
  4. ANTIHEMOPHILIC FACTOR NOS [Suspect]
  5. ANTIHEMOPHILIC FACTOR NOS [Suspect]
  6. CYKLOKAPRON [Concomitant]
  7. NEXIUM [Concomitant]
  8. LEGALON [Concomitant]
  9. EDRONAX /01350601/ [Concomitant]
  10. PRAXITEN [Concomitant]
  11. TRITTICO [Concomitant]
  12. CIBRALEX [Concomitant]
  13. PASPERTIN /00041902/ [Concomitant]
  14. TRAMASTAD [Concomitant]
  15. VOLTAREN /00372301/ [Concomitant]
  16. CODIPERTUSSIN [Concomitant]

REACTIONS (2)
  - PLATELET COUNT DECREASED [None]
  - WHITE BLOOD CELL COUNT DECREASED [None]
